FAERS Safety Report 9434657 (Version 2)
Quarter: 2013Q3

REPORT INFORMATION
  Report Type: Spontaneous
  Country: JP (occurrence: JP)
  Receive Date: 20130801
  Receipt Date: 20130815
  Transmission Date: 20140515
  Serious: Yes (Other)
  Sender: FDA-Public Use
  Company Number: JP-ELI_LILLY_AND_COMPANY-JP201307008678

PATIENT
  Sex: Female

DRUGS (1)
  1. FORTEO [Suspect]
     Route: 058

REACTIONS (3)
  - Cerebral infarction [Unknown]
  - Decreased appetite [Not Recovered/Not Resolved]
  - Blood pressure increased [Unknown]
